FAERS Safety Report 7166256-X (Version None)
Quarter: 2010Q4

REPORT INFORMATION
  Report Type: 
  Country: None (occurrence: None)
  Receive Date: 20101216
  Receipt Date: 20101209
  Transmission Date: 20110411
  Serious: Yes (Other)
  Sender: FDA-Public Use
  Company Number: JP-B.I. PHARMACEUTICALS,INC./RIDGEFIELD-2010-BP-13894NB

PATIENT
  Sex: Male
  Weight: 64 kg

DRUGS (4)
  1. MICARDIS [Suspect]
     Indication: HYPERTENSION
     Dosage: 20 MG
     Route: 048
     Dates: start: 20100409, end: 20100513
  2. MICARDIS [Suspect]
     Dosage: 40 MG
     Route: 048
     Dates: start: 20100514, end: 20100530
  3. MICARDIS [Suspect]
     Dosage: 80 MG
     Route: 048
     Dates: start: 20100531, end: 20100922
  4. BASEN [Concomitant]
     Indication: DIABETES MELLITUS
     Dosage: 0.6 MG
     Route: 048
     Dates: start: 20100409

REACTIONS (5)
  - BLOOD CHLORIDE DECREASED [None]
  - BLOOD GLUCOSE INCREASED [None]
  - BLOOD SODIUM DECREASED [None]
  - HYPERKALAEMIA [None]
  - HYPONATRAEMIA [None]
